FAERS Safety Report 23442195 (Version 1)
Quarter: 2024Q1

REPORT INFORMATION
  Report Type: Spontaneous
  Country: GB (occurrence: GB)
  Receive Date: 20240125
  Receipt Date: 20240125
  Transmission Date: 20240410
  Serious: Yes (Hospitalization)
  Sender: FDA-Public Use
  Company Number: None

PATIENT

DRUGS (10)
  1. IBUPROFEN [Suspect]
     Active Substance: IBUPROFEN
     Indication: Product used for unknown indication
     Dosage: UNK
  2. CETRABEN EMOLLIENT CREAM [Concomitant]
     Indication: Product used for unknown indication
     Dosage: APPLY WHEN REQUIRED - AS EMOLLIENT TO FACE
     Dates: start: 20230925, end: 20240104
  3. ELOCON [Concomitant]
     Active Substance: MOMETASONE FUROATE
     Indication: Product used for unknown indication
     Dosage: 1 DF, QD(APPLY THINLY FOR 2 WEEKS DURING SEVE.)
     Route: 061
     Dates: start: 20230925, end: 20240104
  4. FERROUS FUMARATE [Concomitant]
     Active Substance: FERROUS FUMARATE
     Indication: Product used for unknown indication
     Dosage: 1 DF, BID(FOR 3 MONTH COURSE)
     Dates: start: 20210225, end: 20240104
  5. FEXOFENADINE [Concomitant]
     Active Substance: FEXOFENADINE HYDROCHLORIDE
     Indication: Product used for unknown indication
     Dosage: 1 DF, QD
     Dates: start: 20230227, end: 20240104
  6. HYALURONATE SODIUM [Concomitant]
     Active Substance: HYALURONATE SODIUM
     Indication: Product used for unknown indication
     Dosage: 1 GTT(IN THE AFFECTED EYE(S) EVERY THREE)
     Dates: start: 20230227, end: 20240104
  7. PROTOPIC [Concomitant]
     Active Substance: TACROLIMUS
     Indication: Eczema
     Dosage: 1 DF, BID(APPLY THINLY WHEN ECZEMA SEVERE AND.)
     Route: 061
     Dates: start: 20230925, end: 20240104
  8. NEUTROGENA T-GEL [Concomitant]
     Indication: Product used for unknown indication
     Dosage: UNK(TO BE USED ONCE OR TWICE A WEEK AS DIRECTED)
     Dates: start: 20210225, end: 20240104
  9. TRANEXAMIC ACID [Concomitant]
     Active Substance: TRANEXAMIC ACID
     Indication: Product used for unknown indication
     Dosage: 1 G, TID(TWO TABLETS) AS LONG AS
     Dates: start: 20210225, end: 20240104
  10. NORETHINDRONE [Concomitant]
     Active Substance: NORETHINDRONE
     Indication: Product used for unknown indication
     Dosage: 5 MG, TID(TO BE STARTED 3 DAYS BEFORE EXPECTED O.)
     Dates: start: 20240109

REACTIONS (3)
  - Swelling [Recovered/Resolved]
  - Pain [Unknown]
  - Hypersensitivity [Unknown]
